FAERS Safety Report 11785686 (Version 3)
Quarter: 2016Q2

REPORT INFORMATION
  Report Type: Spontaneous
  Country: US (occurrence: US)
  Receive Date: 20151130
  Receipt Date: 20160512
  Transmission Date: 20160815
  Serious: Yes (Hospitalization, Other)
  Sender: FDA-Public Use
  Company Number: US-UCBSA-2015037732

PATIENT
  Age: 30 Year
  Sex: Female
  Weight: 83.9 kg

DRUGS (6)
  1. CIMZIA [Suspect]
     Active Substance: CERTOLIZUMAB PEGOL
     Dosage: 400 MG, EV 2 WEEKS(QOW), DOSE INCREASED
     Dates: start: 2015, end: 201510
  2. CIPRO [Concomitant]
     Active Substance: CIPROFLOXACIN HYDROCHLORIDE
     Indication: ANAL ABSCESS
     Dosage: UNK
     Dates: start: 2015
  3. FLAGYL [Concomitant]
     Active Substance: METRONIDAZOLE\METRONIDAZOLE HYDROCHLORIDE
     Indication: ANAL ABSCESS
     Dosage: UNK
     Dates: start: 2015
  4. LEVAQUIN [Concomitant]
     Active Substance: LEVOFLOXACIN
     Indication: SINUSITIS
     Dosage: UNK
     Dates: start: 2015
  5. AUGMENTIN [Concomitant]
     Active Substance: AMOXICILLIN\CLAVULANATE POTASSIUM
     Indication: SINUSITIS
     Dosage: UNK
     Dates: start: 2015
  6. CIMZIA [Suspect]
     Active Substance: CERTOLIZUMAB PEGOL
     Indication: CROHN^S DISEASE
     Dosage: 400 MG, MONTHLY (QM)
     Route: 058
     Dates: start: 201410

REACTIONS (4)
  - Sinusitis [Recovered/Resolved]
  - Hypoaesthesia [Recovered/Resolved]
  - Anal abscess [Recovered/Resolved]
  - Off label use [Unknown]

NARRATIVE: CASE EVENT DATE: 2015
